FAERS Safety Report 15336332 (Version 11)
Quarter: 2019Q1

REPORT INFORMATION
  Report Type: Report from Study
  Country: US (occurrence: US)
  Receive Date: 20180830
  Receipt Date: 20190322
  Transmission Date: 20190417
  Serious: Yes (Death, Hospitalization)
  Sender: FDA-Public Use
  Company Number: US-ACTELION-A-NJ2018-173729

PATIENT
  Age: 64 Year
  Sex: Male

DRUGS (5)
  1. OPSUMIT [Suspect]
     Active Substance: MACITENTAN
     Indication: PULMONARY ARTERIAL HYPERTENSION
     Dosage: 10 MG, QD
     Route: 048
     Dates: start: 20180326, end: 20181222
  2. BUMEX [Concomitant]
     Active Substance: BUMETANIDE
     Dosage: UNK
     Dates: start: 20181022
  3. UPTRAVI [Suspect]
     Active Substance: SELEXIPAG
     Indication: PULMONARY ARTERIAL HYPERTENSION
     Route: 048
  4. METOLAZONE. [Concomitant]
     Active Substance: METOLAZONE
     Dosage: UNK
     Dates: start: 20181022
  5. POTASSIUM [Concomitant]
     Active Substance: POTASSIUM
     Dosage: UNK
     Dates: start: 20181022

REACTIONS (26)
  - Scrotal oedema [Recovered/Resolved]
  - Localised oedema [Recovered/Resolved]
  - Oedema peripheral [Recovered/Resolved]
  - Somnolence [Unknown]
  - Abdominal distension [Fatal]
  - Hospitalisation [Unknown]
  - Diarrhoea [Unknown]
  - Dyspnoea [Fatal]
  - Pulmonary hypertension [Unknown]
  - Oxygen saturation decreased [Not Recovered/Not Resolved]
  - Weight increased [Not Recovered/Not Resolved]
  - Acute respiratory failure [Fatal]
  - Hepatic cirrhosis [Unknown]
  - Catheterisation cardiac [Unknown]
  - Oedema [Recovered/Resolved]
  - Dehydration [Unknown]
  - Aspiration pleural cavity [Unknown]
  - Abdominal cavity drainage [Unknown]
  - Pain in extremity [Not Recovered/Not Resolved]
  - Pulmonary arterial hypertension [Fatal]
  - Hypokalaemia [Fatal]
  - Swelling [Fatal]
  - Urinary tract infection [Recovered/Resolved]
  - Asthenia [Unknown]
  - Dyspnoea exertional [Unknown]
  - Malaise [Unknown]

NARRATIVE: CASE EVENT DATE: 20180507
